FAERS Safety Report 8463937-2 (Version None)
Quarter: 2012Q2

REPORT INFORMATION
  Report Type: 
  Country: None (occurrence: None)
  Receive Date: 20120625
  Receipt Date: 20120612
  Transmission Date: 20120825
  Serious: Yes (Congenital Anomaly, Other)
  Sender: FDA-Public Use
  Company Number: US-ELI_LILLY_AND_COMPANY-US201206005274

PATIENT

DRUGS (2)
  1. CYMBALTA [Suspect]
     Route: 064
  2. CYMBALTA [Suspect]
     Route: 064

REACTIONS (2)
  - HYDROCEPHALUS [None]
  - FOETAL EXPOSURE DURING PREGNANCY [None]
